FAERS Safety Report 4692270-X (Version None)
Quarter: 2005Q2

REPORT INFORMATION
  Report Type: 
  Country: None (occurrence: None)
  Receive Date: 20050614
  Receipt Date: 20050601
  Transmission Date: 20051028
  Serious: Yes (Other)
  Sender: FDA-Public Use
  Company Number: 2005058767

PATIENT
  Age: 19 Year
  Sex: Female

DRUGS (1)
  1. BEXTRA [Suspect]
     Indication: UTERINE INFLAMMATION
     Dosage: 40 MG (40 MG 1 IN 1 D) ORAL
     Route: 048
     Dates: start: 20041101

REACTIONS (11)
  - DIZZINESS [None]
  - GROIN PAIN [None]
  - INGUINAL MASS [None]
  - MENSTRUATION IRREGULAR [None]
  - NAUSEA [None]
  - PYREXIA [None]
  - RASH MACULO-PAPULAR [None]
  - RASH PRURITIC [None]
  - SKIN IRRITATION [None]
  - SYNCOPE [None]
  - VOMITING [None]
